FAERS Safety Report 4315409-4 (Version None)
Quarter: 2004Q1

REPORT INFORMATION
  Report Type: 
  Country: None (occurrence: None)
  Receive Date: 20040311
  Receipt Date: 20040301
  Transmission Date: 20041129
  Serious: Yes (Hospitalization)
  Sender: FDA-Public Use
  Company Number: NL-BRISTOL-MYERS SQUIBB COMPANY-12520284

PATIENT
  Age: 33 Year
  Sex: Male

DRUGS (3)
  1. CISPLATIN [Suspect]
     Indication: TESTIS CANCER
  2. ETOPOSIDE [Suspect]
     Indication: TESTIS CANCER
  3. BLEOMYCIN [Suspect]
     Indication: TESTIS CANCER

REACTIONS (2)
  - CEREBRAL INFARCTION [None]
  - MYOCARDIAL INFARCTION [None]
